FAERS Safety Report 17777340 (Version 1)
Quarter: 2020Q2

REPORT INFORMATION
  Report Type: Spontaneous
  Country: US (occurrence: US)
  Receive Date: 20200513
  Receipt Date: 20200513
  Transmission Date: 20200714
  Serious: No
  Sender: FDA-Public Use
  Company Number: US-TORRENT-00009007

PATIENT
  Age: 80 Year
  Sex: Female
  Weight: 73 kg

DRUGS (5)
  1. ASPRIN [Concomitant]
     Active Substance: ASPIRIN
     Indication: ANTICOAGULANT THERAPY
     Dosage: ONCE A DAY SINCE AFTER TRIPLE BYPASS SURGERY AND STILL TAKING.
     Dates: start: 20181117
  2. LOSARTAN AND HYDROCHLOROTHIAZIDE [Suspect]
     Active Substance: HYDROCHLOROTHIAZIDE\LOSARTAN POTASSIUM
     Indication: HYPERTENSION
     Dosage: 50MG/12.5MG ONCE A DAY IN MORNING
     Route: 048
  3. METOPROLOL. [Concomitant]
     Active Substance: METOPROLOL
     Indication: HYPERTENSION
     Dosage: ONCE PER DAY.SINCE 8-10 YEARS AND STILL TAKING.
     Route: 048
  4. CLOPIDOGREL [Concomitant]
     Active Substance: CLOPIDOGREL BISULFATE
     Indication: ANTICOAGULANT THERAPY
     Dosage: SINCE AFTER TRIPLE BYPASS SURGERY AND STILL TAKING.
     Dates: start: 20181117
  5. ATORVASTATIN [Concomitant]
     Active Substance: ATORVASTATIN
     Indication: HYPERLIPIDAEMIA
     Dosage: ONCE A DAY AT BED TIME
     Dates: start: 20181117

REACTIONS (3)
  - Blood pressure inadequately controlled [Unknown]
  - Peripheral swelling [Not Recovered/Not Resolved]
  - Joint swelling [Not Recovered/Not Resolved]
